FAERS Safety Report 9520480 (Version 1)
Quarter: 2013Q3

REPORT INFORMATION
  Report Type: Spontaneous
  Country: US (occurrence: US)
  Receive Date: 20130913
  Receipt Date: 20130913
  Transmission Date: 20140515
  Serious: Yes (Other)
  Sender: FDA-Public Use
  Company Number: US-AMGEN-USASP2013063363

PATIENT
  Age: 64 Year
  Sex: Female
  Weight: 122.4 kg

DRUGS (1)
  1. PROCRIT [Suspect]
     Indication: ANAEMIA
     Dosage: UNK
     Route: 065

REACTIONS (5)
  - Renal impairment [Not Recovered/Not Resolved]
  - Ulcer [Not Recovered/Not Resolved]
  - Hyperkeratosis [Not Recovered/Not Resolved]
  - Fatigue [Not Recovered/Not Resolved]
  - Scratch [Recovered/Resolved]
